FAERS Safety Report 19651179 (Version 1)
Quarter: 2021Q3

REPORT INFORMATION
  Report Type: Report from Study
  Country: None (occurrence: AU)
  Receive Date: 20210802
  Receipt Date: 20210802
  Transmission Date: 20211014
  Serious: Yes (Hospitalization, Other)
  Sender: FDA-Public Use
  Company Number: AU-ABBVIE-21K-008-3995571-00

PATIENT
  Age: 87 Year
  Sex: Female

DRUGS (2)
  1. DUODOPA [Suspect]
     Active Substance: CARBIDOPA\LEVODOPA
  2. DUODOPA [Suspect]
     Active Substance: CARBIDOPA\LEVODOPA
     Indication: PARKINSON^S DISEASE
     Route: 050
     Dates: start: 20180606

REACTIONS (8)
  - Defaecation disorder [Unknown]
  - Rib fracture [Unknown]
  - Intestinal obstruction [Recovered/Resolved]
  - Off label use [Recovered/Resolved]
  - Pleural effusion [Unknown]
  - Defaecation disorder [Recovered/Resolved]
  - Fall [Unknown]
  - Device occlusion [Recovered/Resolved]

NARRATIVE: CASE EVENT DATE: 202107
